FAERS Safety Report 11669074 (Version 1)
Quarter: 2015Q4

REPORT INFORMATION
  Report Type: Spontaneous
  Country: US (occurrence: US)
  Receive Date: 20151027
  Receipt Date: 20151027
  Transmission Date: 20160304
  Serious: No
  Sender: FDA-Public Use
  Company Number: US-009507513-1510USA000505

PATIENT
  Age: 21 Year
  Sex: Female
  Weight: 65.76 kg

DRUGS (1)
  1. IMPLANON [Suspect]
     Active Substance: ETONOGESTREL
     Indication: CONTRACEPTION
     Dosage: 3 YEARS, LEFT ARM
     Dates: start: 201111

REACTIONS (5)
  - Device deployment issue [Unknown]
  - Device breakage [Unknown]
  - Ovarian cyst [Recovered/Resolved]
  - Device difficult to use [Not Recovered/Not Resolved]
  - Incorrect drug administration duration [Not Recovered/Not Resolved]

NARRATIVE: CASE EVENT DATE: 201208
